FAERS Safety Report 9174355 (Version 1)
Quarter: 2013Q1

REPORT INFORMATION
  Report Type: Spontaneous
  Country: US (occurrence: US)
  Receive Date: 20130320
  Receipt Date: 20130320
  Transmission Date: 20140127
  Serious: Yes (Disabling, Other)
  Sender: FDA-Public Use
  Company Number: PHEH2013US006215

PATIENT
  Sex: Female

DRUGS (5)
  1. DIOVAN HCT [Suspect]
     Dosage: 1 DF (VALS 160MG, HCTZ 25MG), QD
     Route: 048
     Dates: start: 2005
  2. MICARDIS [Suspect]
     Dosage: UNK UKN, UNK
  3. CENTRUM SILVER [Concomitant]
  4. CALTRATE D                         /00944201/ [Concomitant]
  5. B COMPLEX WITH C [Concomitant]

REACTIONS (6)
  - Road traffic accident [Unknown]
  - Foot fracture [Unknown]
  - Arthropathy [Unknown]
  - Fall [Unknown]
  - Hypersensitivity [Unknown]
  - Headache [Unknown]
